FAERS Safety Report 4543527-4 (Version None)
Quarter: 2005Q1

REPORT INFORMATION
  Report Type: 
  Country: None (occurrence: None)
  Receive Date: 20050103
  Receipt Date: 20041230
  Transmission Date: 20050727
  Serious: Yes (Death, Life-Threatening, Other)
  Sender: FDA-Public Use
  Company Number: US-BRISTOL-MYERS SQUIBB COMPANY-12810057

PATIENT
  Age: 54 Year
  Sex: Female

DRUGS (2)
  1. CYTOXAN [Suspect]
     Indication: OVARIAN CANCER
  2. XIGRIS [Suspect]
     Indication: SEPSIS
     Dates: start: 20041003, end: 20041006

REACTIONS (8)
  - CEREBRAL HAEMORRHAGE [None]
  - DISSEMINATED INTRAVASCULAR COAGULATION [None]
  - HYPOTENSION [None]
  - MULTI-ORGAN FAILURE [None]
  - NEUTROPENIA [None]
  - OLIGURIA [None]
  - PYREXIA [None]
  - SEPSIS [None]
